FAERS Safety Report 18705901 (Version 1)
Quarter: 2021Q1

REPORT INFORMATION
  Report Type: Spontaneous
  Country: NZ (occurrence: NZ)
  Receive Date: 20210106
  Receipt Date: 20210106
  Transmission Date: 20210419
  Serious: Yes (Hospitalization, Other)
  Sender: FDA-Public Use
  Company Number: NZ-ACCORD-212843

PATIENT
  Age: 76 Year
  Sex: Female

DRUGS (10)
  1. GABAPENTIN. [Concomitant]
     Active Substance: GABAPENTIN
     Indication: CANCER PAIN
  2. DEXMEDETOMIDINE/DEXMEDETOMIDINE HYDROCHLORIDE [Suspect]
     Active Substance: DEXMEDETOMIDINE HYDROCHLORIDE
     Indication: CANCER PAIN
     Dosage: TITRATING TO 1 ML/ HOUR OVER THE FIRST 1 HOUR, 0.75 AND 2 ML/HOUR
     Route: 058
  3. FENTANYL. [Concomitant]
     Active Substance: FENTANYL
     Indication: CANCER PAIN
  4. LIDOCAINE. [Concomitant]
     Active Substance: LIDOCAINE
     Indication: CANCER PAIN
     Dosage: TITRATED TO 2 MG/KG/HOUR
  5. KETAMINE [Concomitant]
     Active Substance: KETAMINE
     Indication: CANCER PAIN
     Dosage: CONTINUOUS SUBCUTANEOUS INFUSION (CSCI),INCREASED TO?300 MG OVER 2 DAYS
     Route: 058
  6. MIDAZOLAM. [Concomitant]
     Active Substance: MIDAZOLAM
     Indication: CANCER PAIN
     Dosage: OVER 24 HOURS
  7. METHADONE [Concomitant]
     Active Substance: METHADONE HYDROCHLORIDE
     Indication: CANCER PAIN
     Dosage: SWITCHED TO CONTINUOUS SUBCUTANEOUS INFUSION (CSCI), 25 MG
     Route: 058
  8. MORPHINE [Concomitant]
     Active Substance: MORPHINE
     Indication: CANCER PAIN
  9. PREGABALIN. [Concomitant]
     Active Substance: PREGABALIN
     Indication: CANCER PAIN
  10. DEXAMETHASONE. [Concomitant]
     Active Substance: DEXAMETHASONE
     Indication: CANCER PAIN

REACTIONS (6)
  - Tremor [Recovered/Resolved]
  - Withdrawal syndrome [Recovered/Resolved]
  - Flushing [Recovered/Resolved]
  - Tachycardia [Recovered/Resolved]
  - Hypertension [Recovered/Resolved]
  - Pyrexia [Recovered/Resolved]
